FAERS Safety Report 21216763 (Version 1)
Quarter: 2022Q3

REPORT INFORMATION
  Report Type: Report from Study
  Country: CA (occurrence: CA)
  Receive Date: 20220816
  Receipt Date: 20220816
  Transmission Date: 20221027
  Serious: Yes (Other)
  Sender: FDA-Public Use
  Company Number: None

PATIENT
  Age: 54 Year
  Sex: Female

DRUGS (11)
  1. METHOTREXATE [Suspect]
     Active Substance: METHOTREXATE
     Indication: Product used for unknown indication
     Route: 058
  2. METFORMIN [Suspect]
     Active Substance: METFORMIN HYDROCHLORIDE
     Indication: Diabetes mellitus
     Dosage: 2 EVERY 1 DAYS
     Route: 048
  3. FOLIC ACID [Suspect]
     Active Substance: FOLIC ACID
     Indication: Product used for unknown indication
     Route: 048
  4. LEFLUNOMIDE [Suspect]
     Active Substance: LEFLUNOMIDE
     Indication: Product used for unknown indication
     Route: 048
  5. PERINDOPRIL [Suspect]
     Active Substance: PERINDOPRIL
     Indication: Hypertension
     Route: 048
  6. DOVONEX [Concomitant]
     Active Substance: CALCIPOTRIENE
     Dosage: TOPICAL
  7. CINNAMON [Concomitant]
     Active Substance: CINNAMON
     Route: 048
  8. CETIRIZINE HYDROCHLORIDE [Concomitant]
     Active Substance: CETIRIZINE HYDROCHLORIDE
  9. SULFASALAZINE [Concomitant]
     Active Substance: SULFASALAZINE
     Route: 065
  10. VITAMIN D3 [Concomitant]
     Active Substance: CHOLECALCIFEROL
     Route: 048
  11. METHOTREXATE [Suspect]
     Active Substance: METHOTREXATE
     Indication: Product used for unknown indication
     Route: 048

REACTIONS (6)
  - Abdominal discomfort [Unknown]
  - Hepatic enzyme increased [Unknown]
  - Pain [Unknown]
  - Pain of skin [Unknown]
  - Pruritus [Unknown]
  - Psoriatic arthropathy [Unknown]
